FAERS Safety Report 6641165-0 (Version None)
Quarter: 2010Q1

REPORT INFORMATION
  Report Type: 
  Country: None (occurrence: None)
  Receive Date: 20100318
  Receipt Date: 20100312
  Transmission Date: 20100710
  Serious: Yes (Other)
  Sender: FDA-Public Use
  Company Number: US-JNJCH-2010006552

PATIENT
  Age: 69 Year
  Sex: Female
  Weight: 63.5 kg

DRUGS (5)
  1. KIRKLAND SIGNATURE 5% [Suspect]
     Indication: ALOPECIA
     Dosage: TEXT:TWICE A DAY
     Route: 061
  2. DIFLUCAN [Concomitant]
     Indication: DRUG USE FOR UNKNOWN INDICATION
     Dosage: TEXT:200MG 1 TAB A DAY
     Route: 048
  3. SYNTHROID [Concomitant]
     Indication: THYROID DISORDER
     Dosage: TEXT:1 TAB A DAY
     Route: 048
  4. ZYRTEC [Concomitant]
     Indication: HYPERSENSITIVITY
     Dosage: TEXT:UNKNOWN
     Route: 048
  5. EFFEXOR [Concomitant]
     Indication: IRRITABLE BOWEL SYNDROME
     Dosage: TEXT:UNKNOWN
     Route: 065

REACTIONS (4)
  - COLECTOMY [None]
  - HAIR GROWTH ABNORMAL [None]
  - WEIGHT INCREASED [None]
  - WRONG DRUG ADMINISTERED [None]
